FAERS Safety Report 7012257-1 (Version None)
Quarter: 2010Q3

REPORT INFORMATION
  Report Type: 
  Country: None (occurrence: None)
  Receive Date: 20100922
  Receipt Date: 20100922
  Transmission Date: 20110219
  Serious: Yes (Hospitalization)
  Sender: FDA-Public Use
  Company Number: None

PATIENT
  Age: 34 Year
  Sex: Female

DRUGS (2)
  1. KADIAN [Suspect]
     Indication: OCCIPITAL NEURALGIA
  2. KADIAN [Suspect]
     Indication: VISION BLURRED

REACTIONS (1)
  - HEADACHE [None]
